FAERS Safety Report 17534956 (Version 7)
Quarter: 2021Q4

REPORT INFORMATION
  Report Type: Report from Study
  Country: None (occurrence: US)
  Receive Date: 20200312
  Receipt Date: 20211130
  Transmission Date: 20220303
  Serious: No
  Sender: FDA-Public Use
  Company Number: US-AKCEA THERAPEUTICS-2020IS001010

PATIENT
  Age: 72 Year
  Sex: Female

DRUGS (3)
  1. TEGSEDI [Suspect]
     Active Substance: INOTERSEN SODIUM
     Indication: Hereditary neuropathic amyloidosis
     Route: 058
     Dates: start: 20190329
  2. DEVICE [Suspect]
     Active Substance: DEVICE
  3. TEGSEDI [Suspect]
     Active Substance: INOTERSEN SODIUM
     Route: 058

REACTIONS (19)
  - Injection site pain [Not Recovered/Not Resolved]
  - Urine protein/creatinine ratio increased [Unknown]
  - Protein urine present [Unknown]
  - Crystal urine present [Unknown]
  - Platelet count decreased [Unknown]
  - Alanine aminotransferase increased [Unknown]
  - Creatinine urine abnormal [Unknown]
  - Bacterial test positive [Unknown]
  - Urinary casts [Unknown]
  - Blood creatinine abnormal [Unknown]
  - Glomerular filtration rate decreased [Unknown]
  - Aspartate aminotransferase increased [Unknown]
  - Urinary sediment present [Unknown]
  - Urine abnormality [Unknown]
  - Urinary occult blood positive [Unknown]
  - Urine ketone body present [Unknown]
  - Red blood cells urine positive [Unknown]
  - Urine leukocyte esterase positive [Unknown]
  - White blood cells urine positive [Unknown]

NARRATIVE: CASE EVENT DATE: 20200819
